FAERS Safety Report 8824337 (Version 1)
Quarter: 2012Q4

REPORT INFORMATION
  Report Type: 
  Country: US (occurrence: US)
  Receive Date: 20121004
  Receipt Date: 20121004
  Transmission Date: 20130627
  Serious: Yes (Hospitalization, Other)
  Sender: FDA-Public Use
  Company Number: US-BAYER-2012-102144

PATIENT
  Age: 44 Year
  Sex: Female

DRUGS (1)
  1. YASMIN [Suspect]

REACTIONS (6)
  - Deep vein thrombosis [None]
  - Post thrombotic syndrome [None]
  - Thrombosis [None]
  - Haematoma [None]
  - Abdominal wall abscess [None]
  - Cellulitis [None]
